FAERS Safety Report 8532544-5 (Version None)
Quarter: 2012Q3

REPORT INFORMATION
  Report Type: 
  Country: None (occurrence: None)
  Receive Date: 20120724
  Receipt Date: 20120718
  Transmission Date: 20120928
  Serious: No
  Sender: FDA-Public Use
  Company Number: US-PFIZER INC-2012172264

PATIENT
  Sex: Female
  Weight: 49.887 kg

DRUGS (2)
  1. CHANTIX [Suspect]
     Indication: SMOKING CESSATION THERAPY
     Dosage: 0.5 MG, DAILY
     Dates: start: 20120701
  2. COZAAR [Concomitant]
     Indication: HYPERTENSION
     Dosage: 50 MG, DAILY

REACTIONS (6)
  - NAUSEA [None]
  - FEELING ABNORMAL [None]
  - CONSTIPATION [None]
  - INSOMNIA [None]
  - ANXIETY [None]
  - HYPERHIDROSIS [None]
